FAERS Safety Report 11099802 (Version 1)
Quarter: 2015Q2

REPORT INFORMATION
  Report Type: Spontaneous
  Country: US (occurrence: US)
  Receive Date: 20150508
  Receipt Date: 20150508
  Transmission Date: 20150821
  Serious: Yes (Death, Hospitalization)
  Sender: FDA-Public Use
  Company Number: US-PFIZER INC-2015152146

PATIENT
  Age: 75 Year
  Sex: Male
  Weight: 74.38 kg

DRUGS (1)
  1. VFEND [Suspect]
     Active Substance: VORICONAZOLE
     Dosage: 400 MG, DAILY (200 MG 2X/DAY)

REACTIONS (3)
  - Lung infection [Fatal]
  - Cardiac disorder [Fatal]
  - Fatigue [Fatal]
